FAERS Safety Report 6295674-7 (Version None)
Quarter: 2009Q3

REPORT INFORMATION
  Report Type: 
  Country: None (occurrence: None)
  Receive Date: 20090804
  Receipt Date: 20090728
  Transmission Date: 20100115
  Serious: Yes (Death, Life-Threatening, Hospitalization)
  Sender: FDA-Public Use
  Company Number: DE-ELI_LILLY_AND_COMPANY-DE200907006300

PATIENT
  Sex: Male
  Weight: 88.2 kg

DRUGS (16)
  1. PEMETREXED [Suspect]
     Indication: ADENOCARCINOMA
     Dosage: 500 MG/M2 (1050MG), ON D1 EVERY 21 DAYS
     Route: 042
     Dates: start: 20090723
  2. CETUXIMAB [Suspect]
     Indication: ADENOCARCINOMA
     Dosage: 400 MG/M2 (840MG), ON D1 CYCLE 1
     Route: 042
     Dates: start: 20090723
  3. CISPLATIN [Suspect]
     Indication: ADENOCARCINOMA
     Dosage: 75 MG/M2 158MG), ON D1 EVERY 21 DAYS
     Route: 042
     Dates: start: 20090723
  4. SIMVAHEXAL [Concomitant]
     Dates: start: 20090125
  5. LASIX [Concomitant]
     Dates: start: 20090625
  6. RAMIPRIL [Concomitant]
     Dates: start: 20090625
  7. CORDAREX [Concomitant]
     Dates: start: 20090625
  8. OXYGEN [Concomitant]
     Dates: start: 20090717
  9. FOLSAURE [Concomitant]
     Indication: PROPHYLAXIS
     Dates: start: 20090706
  10. VIT B12 [Concomitant]
     Indication: PROPHYLAXIS
     Dates: start: 20090717, end: 20090717
  11. EMEND [Concomitant]
     Indication: PROPHYLAXIS
     Dates: start: 20090724, end: 20090725
  12. FORTECORTIN [Concomitant]
     Indication: PROPHYLAXIS
     Dates: start: 20090724, end: 20090725
  13. ENOXAPARIN SODIUM [Concomitant]
     Indication: PROPHYLAXIS
     Dates: start: 20090723
  14. SAB SIMPLEX [Concomitant]
     Indication: PROPHYLAXIS
     Dates: start: 20090727
  15. ATROVENT [Concomitant]
     Dates: start: 20090727
  16. SULTANOL /00139501/ [Concomitant]
     Dates: start: 20090727

REACTIONS (7)
  - ADENOCARCINOMA [None]
  - ILEUS [None]
  - MALIGNANT NEOPLASM PROGRESSION [None]
  - PULMONARY EMBOLISM [None]
  - RENAL FAILURE [None]
  - RESPIRATORY FAILURE [None]
  - RIGHT VENTRICULAR FAILURE [None]
